FAERS Safety Report 19459732 (Version 1)
Quarter: 2021Q2

REPORT INFORMATION
  Report Type: Spontaneous
  Country: ES (occurrence: ES)
  Receive Date: 20210624
  Receipt Date: 20210624
  Transmission Date: 20210717
  Serious: Yes (Other)
  Sender: FDA-Public Use
  Company Number: ES-PFIZER INC-2021440815

PATIENT
  Age: 79 Year
  Sex: Female
  Weight: 85 kg

DRUGS (2)
  1. MEROPENEM. [Suspect]
     Active Substance: MEROPENEM
     Indication: DEVICE RELATED INFECTION
     Dosage: 3 G
     Route: 040
     Dates: start: 20210205, end: 20210310
  2. DAPTOMYCIN. [Suspect]
     Active Substance: DAPTOMYCIN
     Indication: DEVICE RELATED INFECTION
     Dosage: 850 MG
     Route: 040
     Dates: start: 20210129, end: 20210316

REACTIONS (2)
  - Bronchospasm [Recovered/Resolved with Sequelae]
  - Urticaria [Recovered/Resolved with Sequelae]
